FAERS Safety Report 10690544 (Version 1)
Quarter: 2015Q1

REPORT INFORMATION
  Report Type: Spontaneous
  Country: ES (occurrence: ES)
  Receive Date: 20150105
  Receipt Date: 20150105
  Transmission Date: 20150720
  Serious: Yes (Death)
  Sender: FDA-Public Use
  Company Number: ES-CELGENE-ESP-2014124563

PATIENT
  Age: 37 Year
  Sex: Male

DRUGS (4)
  1. ABRAXANE [Suspect]
     Active Substance: PACLITAXEL
     Indication: BREAST CANCER METASTATIC
     Dosage: 125 MILLIGRAM/SQ. METER
     Route: 041
     Dates: start: 2013, end: 201308
  2. XELODA [Concomitant]
     Active Substance: CAPECITABINE
     Indication: BREAST CANCER METASTATIC
     Route: 065
     Dates: start: 20130822
  3. AVASTIN [Concomitant]
     Active Substance: BEVACIZUMAB
     Indication: BREAST CANCER METASTATIC
     Route: 065
     Dates: start: 201304
  4. MORPHINE [Concomitant]
     Active Substance: MORPHINE
     Indication: MUSCULOSKELETAL PAIN
     Route: 048

REACTIONS (2)
  - Pain in extremity [Unknown]
  - Death [Fatal]

NARRATIVE: CASE EVENT DATE: 201308
